FAERS Safety Report 7226927-3 (Version None)
Quarter: 2011Q1

REPORT INFORMATION
  Report Type: 
  Country: None (occurrence: None)
  Receive Date: 20110105
  Receipt Date: 20101223
  Transmission Date: 20110831
  Serious: Yes (Hospitalization, Other)
  Sender: FDA-Public Use
  Company Number: 1000017933

PATIENT
  Sex: Female
  Weight: 4.22 kg

DRUGS (4)
  1. NOPIL (SULFAMETHOXAZOLE, TRIMETHOPRIM) [Suspect]
     Dosage: 320 MG (160 MG, 2 IN 1 D), TRANSPLACENTAL
     Route: 064
     Dates: start: 20100106, end: 20100113
  2. FUNGOTOX (CLOTRIMAZOLE) [Suspect]
     Dosage: TRANSPLACENTAL
     Route: 064
     Dates: start: 20100113, end: 20100123
  3. NOROXIN [Suspect]
     Dosage: 800 MG (400 MG, 2 IN 1 D), TRANSPLACENTAL
     Route: 064
     Dates: start: 20100120, end: 20100123
  4. FOSFOMYCIN (FOSFOMYCIN TROMETAMOL) (GRANULATE) [Suspect]
     Dosage: 3 GM (3 GM, 1 IN 1 D), TRANSPLACENTAL
     Route: 064
     Dates: start: 20100113, end: 20100113

REACTIONS (10)
  - JAUNDICE NEONATAL [None]
  - NEONATAL TACHYPNOEA [None]
  - MATERNAL DRUGS AFFECTING FOETUS [None]
  - CAESAREAN SECTION [None]
  - PULMONARY ARTERY STENOSIS [None]
  - NEONATAL HEPATOMEGALY [None]
  - HYPERBILIRUBINAEMIA NEONATAL [None]
  - ATRIAL SEPTAL DEFECT [None]
  - STRESS POLYCYTHAEMIA [None]
  - CARDIAC MURMUR [None]
